FAERS Safety Report 5604887-6 (Version None)
Quarter: 2008Q1

REPORT INFORMATION
  Report Type: 
  Country: None (occurrence: None)
  Receive Date: 20080128
  Receipt Date: 20080114
  Transmission Date: 20080703
  Serious: Yes (Hospitalization)
  Sender: FDA-Public Use
  Company Number: CZ-SOLVAY-00207032393

PATIENT
  Age: 30596 Day
  Sex: Female

DRUGS (13)
  1. BETALOC ZOK [Concomitant]
     Indication: ILL-DEFINED DISORDER
     Dosage: DAILY DOSE: 25 MILLIGRAM(S)
     Route: 065
  2. PRESTARIUM [Suspect]
     Indication: HYPERTENSION
     Dosage: DAILY DOSE: 4 MILLIGRAM(S)
     Route: 048
     Dates: start: 20070401, end: 20070501
  3. FAMOSAN [Concomitant]
     Indication: ILL-DEFINED DISORDER
     Dosage: DAILY DOSE: 20 MILLIGRAM(S)
     Route: 065
  4. VEROSPIRON [Suspect]
     Indication: HYPERTENSION
     Dosage: DAILY DOSE: 25 MILLIGRAM(S)
     Route: 048
     Dates: start: 20070401, end: 20070501
  5. MIXTARD HUMAN 70/30 [Concomitant]
     Indication: ILL-DEFINED DISORDER
     Dosage: DAILY DOSE:  UNKNOWN
     Route: 058
     Dates: start: 20000101
  6. DIGOXIN [Concomitant]
     Indication: ILL-DEFINED DISORDER
     Dosage: DAILY DOSE: .125 MILLIGRAM(S)
     Route: 048
     Dates: end: 20070501
  7. ACTRAPID [Concomitant]
     Indication: ILL-DEFINED DISORDER
     Dosage: DAILY DOSE:  UNKNOWN
     Route: 058
     Dates: start: 20000101
  8. FURON [Concomitant]
     Indication: ILL-DEFINED DISORDER
     Dosage: DAILY DOSE: 40 MILLIGRAM(S)
     Route: 065
  9. MONO MACK [Concomitant]
     Indication: ILL-DEFINED DISORDER
     Dosage: DAILY DOSE: 50 MILLIGRAM(S)
     Route: 065
  10. WARFARIN ^ORION^ [Concomitant]
     Indication: ILL-DEFINED DISORDER
     Dosage: DAILY DOSE: 5 MILLIGRAM(S)
     Route: 065
  11. KALIUM [Concomitant]
     Indication: ILL-DEFINED DISORDER
     Dosage: DAILY DOSE:  UNKNOWN
     Route: 048
     Dates: end: 20070501
  12. ZALDIAR [Concomitant]
     Indication: ILL-DEFINED DISORDER
     Dosage: DAILY DOSE:  UNKNOWN
     Route: 065
  13. UNKNOWN NON-STEROIDAL ANTI-RHEUMATIC AGENTS [Concomitant]
     Indication: ARTHRALGIA
     Dosage: DAILY DOSE:  UNKNOWN
     Route: 065

REACTIONS (4)
  - CIRCULATORY COLLAPSE [None]
  - HYPERKALAEMIA [None]
  - HYPONATRAEMIA [None]
  - RENAL FAILURE [None]
